FAERS Safety Report 26130428 (Version 1)
Quarter: 2025Q4

REPORT INFORMATION
  Report Type: Other
  Country: None (occurrence: CN)
  Receive Date: 20251208
  Receipt Date: 20251208
  Transmission Date: 20260117
  Serious: No
  Sender: TRIS PHARMA, INC.
  Company Number: CN-TRIS PHARMA, INC.-25CN012173

PATIENT
  Age: 9 Year
  Weight: 35.4 kg

DRUGS (1)
  1. QUILLICHEW ER [Suspect]
     Active Substance: METHYLPHENIDATE HYDROCHLORIDE
     Indication: Attention deficit hyperactivity disorder
     Dosage: 20 MILLIGRAM, QD

REACTIONS (1)
  - Abdominal distension [Recovered/Resolved]
